FAERS Safety Report 9750543 (Version 2)
Quarter: 2013Q4

REPORT INFORMATION
  Report Type: Spontaneous
  Country: US (occurrence: US)
  Receive Date: 20131212
  Receipt Date: 20131212
  Transmission Date: 20140711
  Serious: Yes (Hospitalization, Other)
  Sender: FDA-Public Use
  Company Number: US-US-EMD SERONO, INC.-232207J08USA

PATIENT
  Age: 58 Year
  Sex: Female

DRUGS (2)
  1. REBIF [Suspect]
     Indication: MULTIPLE SCLEROSIS
     Route: 058
     Dates: start: 20030811, end: 20080131
  2. REBIF [Suspect]
     Route: 058
     Dates: start: 20130424

REACTIONS (3)
  - Multiple sclerosis relapse [Recovering/Resolving]
  - Diabetes mellitus [Unknown]
  - Blood cholesterol increased [Unknown]
